FAERS Safety Report 24075721 (Version 1)
Quarter: 2024Q3

REPORT INFORMATION
  Report Type: Spontaneous
  Country: US (occurrence: US)
  Receive Date: 20240710
  Receipt Date: 20240710
  Transmission Date: 20241016
  Serious: Yes (Hospitalization, Other)
  Sender: GLAXOSMITHKLINE
  Company Number: US-GSK-US2024GSK083696

PATIENT

DRUGS (3)
  1. ABACAVIR [Suspect]
     Active Substance: ABACAVIR
     Indication: HIV infection
     Dosage: UNK
  2. LAMIVUDINE [Suspect]
     Active Substance: LAMIVUDINE
     Indication: HIV infection
     Dosage: UNK
  3. DOLUTEGRAVIR [Suspect]
     Active Substance: DOLUTEGRAVIR
     Indication: HIV infection
     Dosage: UNK

REACTIONS (27)
  - Virologic failure [Recovered/Resolved]
  - Malignant syphilis [Recovering/Resolving]
  - Rash [Recovering/Resolving]
  - Papule [Recovering/Resolving]
  - Oral disorder [Recovered/Resolved]
  - Trismus [Unknown]
  - Dermatitis [Recovering/Resolving]
  - Cough [Unknown]
  - Tachycardia [Unknown]
  - Pyrexia [Unknown]
  - Skin plaque [Recovered/Resolved]
  - Skin mass [Recovered/Resolved]
  - Skin ulcer [Recovered/Resolved]
  - Normocytic anaemia [Unknown]
  - Lymphadenopathy [Unknown]
  - Streptococcal infection [Unknown]
  - Skin lesion [Recovering/Resolving]
  - Gonorrhoea [Unknown]
  - Proctitis chlamydial [Unknown]
  - Nodular rash [Not Recovered/Not Resolved]
  - Post inflammatory pigmentation change [Unknown]
  - Scar [Recovering/Resolving]
  - Staphylococcal infection [Unknown]
  - Scab [Unknown]
  - Psoriasis [Unknown]
  - Rash papular [Unknown]
  - Granuloma [Unknown]
